FAERS Safety Report 6339772-8 (Version None)
Quarter: 2009Q3

REPORT INFORMATION
  Report Type: 
  Country: None (occurrence: None)
  Receive Date: 20090903
  Receipt Date: 20090825
  Transmission Date: 20100115
  Serious: No
  Sender: FDA-Public Use
  Company Number: JP-ELI_LILLY_AND_COMPANY-JP200909000350

PATIENT
  Age: 86 Year
  Sex: Male

DRUGS (2)
  1. ZYPREXA [Suspect]
     Indication: DEMENTIA WITH LEWY BODIES
     Dosage: 2.5 MG, DAILY (1/D)
     Route: 048
     Dates: start: 20090701, end: 20090101
  2. ZYPREXA [Suspect]
     Dosage: 5 MG, DAILY (1/D)
     Route: 048
     Dates: start: 20090101, end: 20090819

REACTIONS (4)
  - OFF LABEL USE [None]
  - PLATELET COUNT DECREASED [None]
  - RED BLOOD CELL COUNT DECREASED [None]
  - WHITE BLOOD CELL COUNT DECREASED [None]
